FAERS Safety Report 6145025-3 (Version None)
Quarter: 2009Q2

REPORT INFORMATION
  Report Type: 
  Country: None (occurrence: None)
  Receive Date: 20090406
  Receipt Date: 20090402
  Transmission Date: 20091009
  Serious: Yes (Death, Hospitalization)
  Sender: FDA-Public Use
  Company Number: US-BRISTOL-MYERS SQUIBB COMPANY-14570030

PATIENT
  Age: 75 Year
  Sex: Female
  Weight: 86 kg

DRUGS (9)
  1. CETUXIMAB [Suspect]
     Indication: PANCREATIC CARCINOMA
     Dates: start: 20090312, end: 20090312
  2. EVEROLIMUS [Suspect]
     Indication: PANCREATIC CARCINOMA
     Dosage: INITIAL DOSE 12MAR09
     Dates: start: 20090315, end: 20090315
  3. LIPITOR [Concomitant]
  4. ACIPHEX [Concomitant]
  5. PAXIL [Concomitant]
  6. PLAQUENIL [Concomitant]
  7. VERAPAMIL [Concomitant]
  8. PANCRELIPASE [Concomitant]
     Dosage: PANCRELIPASE WITH MEALS
  9. ZITHROMAX [Concomitant]
     Route: 048

REACTIONS (1)
  - PNEUMONIA [None]
